FAERS Safety Report 6238983-X (Version None)
Quarter: 2009Q2

REPORT INFORMATION
  Report Type: 
  Country: None (occurrence: None)
  Receive Date: 20090622
  Receipt Date: 20090615
  Transmission Date: 20091009
  Serious: Yes (Hospitalization)
  Sender: FDA-Public Use
  Company Number: A0792309A

PATIENT
  Age: 55 Year
  Sex: Male
  Weight: 93.9 kg

DRUGS (16)
  1. MELPHALAN HYDROCHLORIDE [Suspect]
     Indication: MULTIPLE MYELOMA
     Route: 048
     Dates: start: 20090416
  2. BORTEZOMIB [Suspect]
     Indication: MULTIPLE MYELOMA
     Route: 042
  3. CYCLOSPORINE [Suspect]
     Indication: MULTIPLE MYELOMA
     Route: 048
  4. FLUDARABINE PHOSPHATE [Suspect]
     Indication: MULTIPLE MYELOMA
     Route: 042
  5. MYCOPHENOLATE MOFETIL [Suspect]
     Indication: MULTIPLE MYELOMA
  6. CALCIUM [Concomitant]
  7. DAPSONE [Concomitant]
  8. DIGOXIN [Concomitant]
  9. PANTOPRAZOLE SODIUM [Concomitant]
  10. FEXOFENADINE [Concomitant]
  11. TAMSULOSIN HYDROCHLORIDE [Concomitant]
  12. METOPROLOL SUCCINATE [Concomitant]
  13. LORAZEPAM [Concomitant]
  14. MAGNESIUM SULFATE [Concomitant]
  15. VALACYCLOVIR HCL [Concomitant]
  16. BENICAR [Concomitant]

REACTIONS (3)
  - FATIGUE [None]
  - GASTROINTESTINAL HAEMORRHAGE [None]
  - HYPOTENSION [None]
